FAERS Safety Report 7810799-X (Version None)
Quarter: 2011Q4

REPORT INFORMATION
  Report Type: 
  Country: None (occurrence: None)
  Receive Date: 20111012
  Receipt Date: 20111012
  Transmission Date: 20120403
  Serious: Yes (Other)
  Sender: FDA-Public Use
  Company Number: None

PATIENT
  Age: 48 Year
  Sex: Male

DRUGS (1)
  1. EGRIFTA [Suspect]
     Indication: LIPODYSTROPHY ACQUIRED
     Dosage: 2MG QD SC
     Route: 058
     Dates: start: 20110419, end: 20110928

REACTIONS (2)
  - ABDOMINAL DISTENSION [None]
  - SWELLING [None]
